FAERS Safety Report 6272085-1 (Version None)
Quarter: 2009Q3

REPORT INFORMATION
  Report Type: 
  Country: None (occurrence: None)
  Receive Date: 20090717
  Receipt Date: 20090707
  Transmission Date: 20100115
  Serious: Yes (Death, Hospitalization)
  Sender: FDA-Public Use
  Company Number: B0566702A

PATIENT
  Age: 59 Year
  Sex: Female
  Weight: 56 kg

DRUGS (7)
  1. TYKERB [Suspect]
     Dosage: 1250MG PER DAY
     Route: 065
     Dates: start: 20090205, end: 20090209
  2. ZOLEDRONIC ACID [Concomitant]
     Dates: start: 20081001
  3. XELODA [Concomitant]
  4. CARBOPLATIN [Concomitant]
  5. CYCLOPHOSPHAMIDE [Concomitant]
     Indication: ADJUVANT THERAPY
     Dates: start: 20080101
  6. HERCEPTIN [Concomitant]
     Dates: start: 20081025
  7. DEXAMETHASONE [Concomitant]

REACTIONS (6)
  - ACUTE INTERSTITIAL PNEUMONITIS [None]
  - DYSPNOEA [None]
  - INTERSTITIAL LUNG DISEASE [None]
  - PNEUMOCYSTIS JIROVECI INFECTION [None]
  - PYREXIA [None]
  - RESPIRATORY FAILURE [None]
